FAERS Safety Report 6754801-5 (Version None)
Quarter: 2010Q2

REPORT INFORMATION
  Report Type: 
  Country: None (occurrence: None)
  Receive Date: 20100601
  Receipt Date: 20100520
  Transmission Date: 20101027
  Serious: Yes (Other)
  Sender: FDA-Public Use
  Company Number: SE-DEXPHARM-20100454

PATIENT
  Age: 21 Year
  Sex: Male

DRUGS (1)
  1. DESCUTAN [Suspect]
     Dosage: TOPICAL
     Route: 061

REACTIONS (2)
  - ANAPHYLACTIC REACTION [None]
  - SPEECH DISORDER [None]
